FAERS Safety Report 7870419-5 (Version None)
Quarter: 2011Q3

REPORT INFORMATION
  Report Type: 
  Country: None (occurrence: None)
  Receive Date: 20110920
  Receipt Date: 20101223
  Transmission Date: 20111222
  Serious: Yes (Hospitalization, Other)
  Sender: FDA-Public Use
  Company Number: AUR-APL-2010-02958 (3)

PATIENT
  Age: 47 Year
  Sex: Female
  Weight: 56.7 kg

DRUGS (6)
  1. CLONAZEPAM [Concomitant]
  2. LAMICTAL [Concomitant]
  3. INSULIN [Concomitant]
  4. PAROXETINE HCL [Suspect]
     Indication: DEPRESSION
     Dosage: 20MG - DAILY
     Dates: end: 20101101
  5. NUVIGIL [Suspect]
     Indication: NARCOLEPSY
     Dates: start: 20101223
  6. PRISTIQ [Suspect]
     Indication: DEPRESSION
     Dosage: 50MG - DAILY
     Dates: start: 20100801

REACTIONS (11)
  - SUICIDAL IDEATION [None]
  - FATIGUE [None]
  - SOMNOLENCE [None]
  - DIZZINESS [None]
  - DRUG WITHDRAWAL SYNDROME [None]
  - INDIFFERENCE [None]
  - THINKING ABNORMAL [None]
  - INSOMNIA [None]
  - DEPRESSION [None]
  - DRUG DEPENDENCE [None]
  - DRUG INEFFECTIVE [None]
